FAERS Safety Report 18518356 (Version 1)
Quarter: 2020Q4

REPORT INFORMATION
  Report Type: Other
  Country: US (occurrence: US)
  Receive Date: 20201118
  Receipt Date: 20201118
  Transmission Date: 20210114
  Serious: Yes (Hospitalization, Other)
  Sender: FDA-Public Use
  Company Number: US-ROCHE-2712984

PATIENT
  Age: 61 Year
  Sex: Female

DRUGS (12)
  1. HUMIRA [Concomitant]
     Active Substance: ADALIMUMAB
  2. ACTEMRA [Suspect]
     Active Substance: TOCILIZUMAB
     Indication: RHEUMATOID ARTHRITIS
     Dosage: INJECT 162 MG SUBCUTANEOUSLY EVERY WEEK
     Route: 058
  3. LIDOCAINE. [Concomitant]
     Active Substance: LIDOCAINE
  4. TRAZODONE HYDROCHLORIDE. [Concomitant]
     Active Substance: TRAZODONE HYDROCHLORIDE
  5. SIMPONI ARIA [Concomitant]
     Active Substance: GOLIMUMAB
  6. LYRICA [Concomitant]
     Active Substance: PREGABALIN
  7. OXYCONTIN [Concomitant]
     Active Substance: OXYCODONE HYDROCHLORIDE
     Dosage: 20/10 MG TWICE DAILY
  8. ACTEMRA [Suspect]
     Active Substance: TOCILIZUMAB
     Indication: RHEUMATOID ARTHRITIS
  9. TRICOR [Concomitant]
     Active Substance: FENOFIBRATE
  10. OMEGA 3 [Concomitant]
     Active Substance: OMEGA-3 FATTY ACIDS
  11. MAGNESIUM [Concomitant]
     Active Substance: MAGNESIUM
  12. PROTONIX (UNK INGREDIENTS) [Concomitant]

REACTIONS (2)
  - Osteonecrosis [Unknown]
  - Hepatic infection [Unknown]

NARRATIVE: CASE EVENT DATE: 20201005
